FAERS Safety Report 5035858-9 (Version None)
Quarter: 2006Q2

REPORT INFORMATION
  Report Type: 
  Country: None (occurrence: None)
  Receive Date: 20060526
  Receipt Date: 20060220
  Transmission Date: 20061013
  Serious: Yes (Hospitalization, Other)
  Sender: FDA-Public Use
  Company Number: WAES 0602USA04860

PATIENT
  Age: 74 Year
  Sex: Male

DRUGS (3)
  1. VYTORIN [Suspect]
     Dosage: PO
     Route: 048
  2. BENICAR [Concomitant]
  3. LASIX [Concomitant]

REACTIONS (1)
  - BLOOD CREATINE PHOSPHOKINASE INCREASED [None]
